FAERS Safety Report 5922451-6 (Version None)
Quarter: 2008Q4

REPORT INFORMATION
  Report Type: 
  Country: None (occurrence: None)
  Receive Date: 20081017
  Receipt Date: 20081009
  Transmission Date: 20090506
  Serious: Yes (Other)
  Sender: FDA-Public Use
  Company Number: GB-ASTRAZENECA-2008GB01920

PATIENT
  Sex: Male

DRUGS (2)
  1. CASODEX [Suspect]
     Indication: PROSTATE CANCER
     Route: 048
  2. DECAPEPTYL SR [Suspect]
     Indication: PROSTATE CANCER
     Route: 065

REACTIONS (2)
  - AORTIC STENOSIS [None]
  - PROSTATIC SPECIFIC ANTIGEN INCREASED [None]
